FAERS Safety Report 9183756 (Version 1)
Quarter: 2013Q1

REPORT INFORMATION
  Report Type: Spontaneous
  Country: US (occurrence: US)
  Receive Date: 20130322
  Receipt Date: 20130322
  Transmission Date: 20140127
  Serious: No
  Sender: FDA-Public Use
  Company Number: US-TARO-2011P1004927

PATIENT
  Age: 79 Year
  Sex: Female
  Weight: 49.44 kg

DRUGS (7)
  1. NYSTATIN [Suspect]
     Indication: ORAL CANDIDIASIS
     Route: 048
     Dates: start: 20110308, end: 20110311
  2. NYSTATIN [Suspect]
     Indication: ORAL CANDIDIASIS
     Route: 048
     Dates: start: 20110312, end: 201103
  3. NYSTATIN [Suspect]
     Indication: ORAL CANDIDIASIS
     Route: 048
     Dates: start: 20120614, end: 20120702
  4. CIPROFLOXACIN [Suspect]
     Dates: start: 20120614, end: 20120621
  5. ENALAPRIL/HCTZ [Concomitant]
  6. ADVIL [Concomitant]
     Route: 048
  7. METHOTREXATE [Concomitant]
     Route: 048

REACTIONS (7)
  - Pruritus generalised [Recovered/Resolved]
  - Rash macular [Recovered/Resolved]
  - Skin exfoliation [Recovered/Resolved]
  - Drug administration error [Recovered/Resolved]
  - Cough [Recovered/Resolved]
  - Infection [Recovering/Resolving]
  - Dyspnoea [Recovered/Resolved]
